FAERS Safety Report 7111421-0 (Version None)
Quarter: 2010Q4

REPORT INFORMATION
  Report Type: 
  Country: None (occurrence: None)
  Receive Date: 20101118
  Receipt Date: 20100310
  Transmission Date: 20110411
  Serious: No
  Sender: FDA-Public Use
  Company Number: US-PFIZER INC-2010031686

PATIENT

DRUGS (1)
  1. ZYVOX [Suspect]
     Indication: OSTEOMYELITIS

REACTIONS (1)
  - NAUSEA [None]
